FAERS Safety Report 4712963-5 (Version None)
Quarter: 2005Q3

REPORT INFORMATION
  Report Type: 
  Country: None (occurrence: None)
  Receive Date: 20050711
  Receipt Date: 20050701
  Transmission Date: 20060218
  Serious: Yes (Hospitalization)
  Sender: FDA-Public Use
  Company Number: 2005-07-0056

PATIENT
  Age: 55 Year
  Sex: Female
  Weight: 52 kg

DRUGS (3)
  1. BETAMETHASONE SODIUM PHOSPHATE [Suspect]
     Indication: PERIARTHRITIS
     Dosage: INTRAMUSCULAR
     Route: 030
     Dates: start: 20050406, end: 20050406
  2. DEXIBUPROFEN [Suspect]
     Indication: PERIARTHRITIS
     Dosage: 450 MG QD ORAL
     Route: 048
     Dates: start: 20050412
  3. NEXIUM [Concomitant]

REACTIONS (10)
  - BACK PAIN [None]
  - DYSPNOEA [None]
  - GASTRITIS [None]
  - GENERAL PHYSICAL HEALTH DETERIORATION [None]
  - HEADACHE [None]
  - HEPATIC ENZYME INCREASED [None]
  - HYPOTHERMIA [None]
  - POLYDIPSIA [None]
  - POLYURIA [None]
  - PSYCHOTIC DISORDER [None]
